FAERS Safety Report 5327998-1 (Version None)
Quarter: 2007Q2

REPORT INFORMATION
  Report Type: 
  Country: None (occurrence: None)
  Receive Date: 20070517
  Receipt Date: 20070505
  Transmission Date: 20071010
  Serious: Yes (Hospitalization)
  Sender: FDA-Public Use
  Company Number: US-SHR-US-2007-016192

PATIENT
  Age: 77 Year
  Sex: Male

DRUGS (4)
  1. BETASERON [Suspect]
     Indication: SECONDARY PROGRESSIVE MULTIPLE SCLEROSIS
     Dosage: 8 MIU, EVERY 2D
     Route: 058
     Dates: start: 19991025, end: 20061201
  2. BETASERON [Suspect]
     Dosage: 8 MIU, EVERY 2D
     Route: 058
     Dates: start: 20070505
  3. PROSTATE MEDICATION [Suspect]
  4. SULFA ANTIBIOTIC [Suspect]

REACTIONS (8)
  - BLADDER MASS [None]
  - BLOOD PRESSURE DECREASED [None]
  - FALL [None]
  - MOBILITY DECREASED [None]
  - PYREXIA [None]
  - RASH [None]
  - TREATMENT NONCOMPLIANCE [None]
  - WRIST FRACTURE [None]
